FAERS Safety Report 20410338 (Version 4)
Quarter: 2025Q2

REPORT INFORMATION
  Report Type: Report from Study
  Country: FR (occurrence: FR)
  Receive Date: 20220201
  Receipt Date: 20250422
  Transmission Date: 20250716
  Serious: Yes (Life-Threatening, Hospitalization, Other)
  Sender: AMGEN
  Company Number: US-HORIZON THERAPEUTICS-HZN-2022-000824

PATIENT
  Age: 15 Year
  Sex: Male
  Weight: 79 kg

DRUGS (10)
  1. TEPROTUMUMAB [Suspect]
     Active Substance: TEPROTUMUMAB
     Indication: Endocrine ophthalmopathy
     Dosage: 1700 MILLIGRAM (10 MG/KG), Q3WK
     Route: 040
     Dates: start: 20211105
  2. TEPROTUMUMAB [Suspect]
     Active Substance: TEPROTUMUMAB
     Dosage: 20 MILLIGRAM Q3WK
     Route: 040
     Dates: start: 20211126
  3. TEPROTUMUMAB [Suspect]
     Active Substance: TEPROTUMUMAB
     Dosage: 20 MILLIGRAM Q3WK
     Route: 040
     Dates: start: 20211215
  4. TEPROTUMUMAB [Suspect]
     Active Substance: TEPROTUMUMAB
     Dosage: 20 MILLIGRAM Q3WK
     Route: 040
     Dates: start: 20220101
  5. TEPROTUMUMAB [Suspect]
     Active Substance: TEPROTUMUMAB
     Dosage: 20 MILLIGRAM Q3WK
     Route: 040
     Dates: start: 20220126
  6. CARBIMAZOLE [Concomitant]
     Active Substance: CARBIMAZOLE
     Indication: Product used for unknown indication
     Dosage: 30 MG, QD
     Route: 065
  7. HYDROCORTISONE ACETATE [Concomitant]
     Active Substance: HYDROCORTISONE ACETATE
     Dosage: 7 MG, BID
     Route: 065
  8. HYDROCORTISONE ACETATE [Concomitant]
     Active Substance: HYDROCORTISONE ACETATE
     Dosage: 5 MG, BID
     Route: 065
  9. SODIUM SELENITE [Concomitant]
     Active Substance: SODIUM SELENITE
     Dates: start: 202111
  10. CARBIMAZOLE [Concomitant]
     Active Substance: CARBIMAZOLE
     Indication: Graves^ disease

REACTIONS (8)
  - Coma [Unknown]
  - Altered state of consciousness [Unknown]
  - Thrombocytopenia [Unknown]
  - Pyrexia [Unknown]
  - Asthenia [Unknown]
  - Inappropriate schedule of product administration [Unknown]
  - Off label use [Unknown]
  - Malaise [Unknown]

NARRATIVE: CASE EVENT DATE: 20211126
